FAERS Safety Report 22378335 (Version 1)
Quarter: 2023Q2

REPORT INFORMATION
  Report Type: Spontaneous
  Country: US (occurrence: US)
  Receive Date: 20230529
  Receipt Date: 20230529
  Transmission Date: 20230722
  Serious: Yes (Life-Threatening, Hospitalization)
  Sender: FDA-Public Use
  Company Number: US-drreddys-LIT/USA/23/0165965

PATIENT
  Age: 74 Year
  Sex: Female

DRUGS (3)
  1. CITALOPRAM [Suspect]
     Active Substance: CITALOPRAM HYDROBROMIDE
     Indication: Product used for unknown indication
     Dosage: THREE
  2. ANAGRELIDE [Suspect]
     Active Substance: ANAGRELIDE
     Indication: Product used for unknown indication
     Dosage: 54 DOSAGE FORM OF ANAGRELIDE 0.5MG
  3. CLONAZEPAM [Suspect]
     Active Substance: CLONAZEPAM
     Indication: Product used for unknown indication
     Dosage: THREE

REACTIONS (5)
  - Electrocardiogram QT prolonged [Recovering/Resolving]
  - Orthostatic hypotension [Recovering/Resolving]
  - Tachycardia [Recovering/Resolving]
  - Intentional overdose [Unknown]
  - Suicide attempt [Unknown]
